FAERS Safety Report 4279393-4 (Version None)
Quarter: 2004Q1

REPORT INFORMATION
  Report Type: 
  Country: None (occurrence: None)
  Receive Date: 20040127
  Receipt Date: 20040121
  Transmission Date: 20041129
  Serious: Yes (Other)
  Sender: FDA-Public Use
  Company Number: WAES 0401GBR00186

PATIENT
  Age: 69 Year
  Sex: Female

DRUGS (2)
  1. INSULIN [Concomitant]
  2. VIOXX [Suspect]
     Indication: ARTHRALGIA
     Route: 048
     Dates: start: 20031209, end: 20031217

REACTIONS (1)
  - HYPOGLYCAEMIA [None]
